FAERS Safety Report 18600675 (Version 3)
Quarter: 2021Q2

REPORT INFORMATION
  Report Type: Spontaneous
  Country: IN (occurrence: IN)
  Receive Date: 20201210
  Receipt Date: 20210512
  Transmission Date: 20210717
  Serious: Yes (Other)
  Sender: FDA-Public Use
  Company Number: IN-PFIZER INC-2020481400

PATIENT
  Age: 56 Year
  Sex: Female

DRUGS (2)
  1. LETROZOLE. [Concomitant]
     Active Substance: LETROZOLE
     Dosage: UNK
     Dates: start: 20201012
  2. PALBACE [Suspect]
     Active Substance: PALBOCICLIB
     Indication: BREAST CANCER METASTATIC
     Dosage: 125 MG, 125MG ONCE DAILY ON DAYS 1?21, THEN 7 DAYS REST
     Route: 048
     Dates: start: 20201020

REACTIONS (15)
  - Fatigue [Recovering/Resolving]
  - Vomiting [Unknown]
  - Swollen tongue [Unknown]
  - Pain [Unknown]
  - Pain [Unknown]
  - Throat irritation [Unknown]
  - Blood calcium decreased [Unknown]
  - Pyrexia [Unknown]
  - Asphyxia [Recovering/Resolving]
  - Headache [Unknown]
  - Tongue disorder [Unknown]
  - Oropharyngeal pain [Unknown]
  - Fatigue [Unknown]
  - Neoplasm progression [Unknown]
  - Pyrexia [Recovering/Resolving]

NARRATIVE: CASE EVENT DATE: 2021
